FAERS Safety Report 17054722 (Version 1)
Quarter: 2019Q4

REPORT INFORMATION
  Report Type: Spontaneous
  Country: US (occurrence: US)
  Receive Date: 20191120
  Receipt Date: 20191120
  Transmission Date: 20200122
  Serious: Yes (Hospitalization)
  Sender: FDA-Public Use
  Company Number: US-JNJFOC-20191116165

PATIENT
  Age: 66 Year
  Sex: Female
  Weight: 108.96 kg

DRUGS (1)
  1. XARELTO [Suspect]
     Active Substance: RIVAROXABAN
     Indication: THROMBOSIS
     Route: 048

REACTIONS (6)
  - Dyspnoea [Not Recovered/Not Resolved]
  - Incorrect dose administered [Unknown]
  - Chest pain [Not Recovered/Not Resolved]
  - Heart rate increased [Not Recovered/Not Resolved]
  - Off label use [Unknown]
  - Back pain [Unknown]

NARRATIVE: CASE EVENT DATE: 201906
